FAERS Safety Report 5531219-4 (Version None)
Quarter: 2007Q4

REPORT INFORMATION
  Report Type: 
  Country: None (occurrence: None)
  Receive Date: 20071130
  Receipt Date: 20071127
  Transmission Date: 20080405
  Serious: Yes (Other)
  Sender: FDA-Public Use
  Company Number: US-MERCK-0708USA02822

PATIENT
  Age: 76 Year
  Sex: Male

DRUGS (5)
  1. JANUVIA [Suspect]
     Indication: TYPE 2 DIABETES MELLITUS
     Route: 048
     Dates: start: 20070802, end: 20070801
  2. METFORMIN [Concomitant]
     Route: 065
  3. GLIPIZIDE [Concomitant]
     Route: 065
  4. VYTORIN [Concomitant]
     Route: 048
  5. LISINOPRIL [Concomitant]
     Route: 048

REACTIONS (7)
  - CEREBROVASCULAR ACCIDENT [None]
  - DIPLOPIA [None]
  - EYE SWELLING [None]
  - HEADACHE [None]
  - OEDEMA [None]
  - SINUSITIS [None]
  - VISION BLURRED [None]
